FAERS Safety Report 6983707-1 (Version None)
Quarter: 2010Q3

REPORT INFORMATION
  Report Type: 
  Country: None (occurrence: None)
  Receive Date: 20100914
  Receipt Date: 20081205
  Transmission Date: 20110219
  Serious: Yes (Other)
  Sender: FDA-Public Use
  Company Number: US-WYE-H07095608

PATIENT
  Age: 74 Year
  Sex: Female
  Weight: 59.02 kg

DRUGS (3)
  1. ADVIL LIQUI-GELS [Suspect]
     Indication: BACK PAIN
     Dosage: 1 TO 2 CAPLETS DAILY
     Route: 048
     Dates: start: 20080101, end: 20081028
  2. NEXIUM [Concomitant]
     Indication: ABDOMINAL DISCOMFORT
     Route: 048
     Dates: start: 20030101
  3. ACETYLSALICYLIC ACID [Concomitant]
     Route: 048
     Dates: start: 20070101

REACTIONS (2)
  - BLOOD PRESSURE INCREASED [None]
  - TRANSIENT ISCHAEMIC ATTACK [None]
